FAERS Safety Report 9400383 (Version 3)
Quarter: 2013Q3

REPORT INFORMATION
  Report Type: Spontaneous
  Country: DK (occurrence: JP)
  Receive Date: 20130715
  Receipt Date: 20130823
  Transmission Date: 20140515
  Serious: Yes (Life-Threatening)
  Sender: FDA-Public Use
  Company Number: JP-FRI-1000046637

PATIENT
  Age: 23 Year
  Sex: Male
  Weight: 60 kg

DRUGS (3)
  1. LEXAPRO [Suspect]
     Indication: DEPRESSION
     Dosage: 10 MG
     Route: 048
     Dates: start: 20130411, end: 20130413
  2. MEILAX [Concomitant]
     Indication: ANXIETY DISORDER
     Dosage: 2 MG
     Route: 048
     Dates: start: 20130411
  3. VEGETAMIN-B [Concomitant]
     Indication: INSOMNIA
     Dosage: 1 DF
     Route: 048
     Dates: end: 20130413

REACTIONS (4)
  - Activation syndrome [Recovered/Resolved]
  - Altered state of consciousness [Recovered/Resolved]
  - Hepatic function abnormal [Unknown]
  - Overdose [Recovered/Resolved]
